FAERS Safety Report 25954940 (Version 2)
Quarter: 2025Q4

REPORT INFORMATION
  Report Type: Spontaneous
  Country: US (occurrence: US)
  Receive Date: 20251024
  Receipt Date: 20251030
  Transmission Date: 20260118
  Serious: No
  Sender: TOLMAR
  Company Number: US-Tolmar-TLM-2025-07771

PATIENT

DRUGS (3)
  1. ELIGARD [Suspect]
     Active Substance: LEUPROLIDE ACETATE
     Indication: Breast cancer stage IV
     Dosage: EXPIRATION DATES: MAY-2026; MAY-2026; 31-MAY-2026?GTIN: 00362935756804?SN: 1952370439402
  2. ELIGARD [Suspect]
     Active Substance: LEUPROLIDE ACETATE
     Dosage: REPLACEMENT DOSE
  3. DEVICE [Suspect]
     Active Substance: DEVICE
     Indication: Breast cancer stage IV
     Dosage: EXPIRATION DATES: MAY-2026; MAY-2026; 31-MAY-2026?GTIN: 00362935756804?SN: 1952370439402

REACTIONS (3)
  - Product packaging quantity issue [Unknown]
  - Off label use [Unknown]
  - Intercepted product preparation error [Unknown]
